FAERS Safety Report 9838558 (Version 3)
Quarter: 2014Q2

REPORT INFORMATION
  Report Type: Spontaneous
  Country: JP (occurrence: JP)
  Receive Date: 20140123
  Receipt Date: 20140421
  Transmission Date: 20141212
  Serious: Yes (Hospitalization)
  Sender: FDA-Public Use
  Company Number: JP-SA-2014SA008606

PATIENT
  Age: 34 Year
  Sex: Female

DRUGS (4)
  1. OXALIPLATIN [Suspect]
     Indication: NEOPLASM RECURRENCE
     Route: 065
     Dates: start: 201009
  2. CAPECITABINE [Suspect]
     Indication: NEOPLASM RECURRENCE
     Route: 065
     Dates: start: 201009
  3. BEVACIZUMAB [Suspect]
     Indication: NEOPLASM RECURRENCE
     Route: 065
     Dates: start: 201009
  4. ACETAMINOPHEN [Concomitant]
     Route: 048

REACTIONS (12)
  - Hepatic enzyme increased [Unknown]
  - Aspartate aminotransferase increased [Unknown]
  - Alanine aminotransferase increased [Unknown]
  - Blood lactate dehydrogenase increased [Unknown]
  - Blood alkaline phosphatase increased [Unknown]
  - Blood bilirubin increased [Unknown]
  - C-reactive protein increased [Unknown]
  - Renal impairment [Unknown]
  - Blood urea increased [Unknown]
  - Blood creatinine increased [Unknown]
  - Gamma-glutamyltransferase increased [Unknown]
  - Thrombocytopenia [Recovered/Resolved]
